FAERS Safety Report 9844528 (Version 1)
Quarter: 2014Q1

REPORT INFORMATION
  Report Type: Spontaneous
  Country: DE (occurrence: None)
  Receive Date: 20140122
  Receipt Date: 20140122
  Transmission Date: 20141002
  Serious: Yes (Other)
  Sender: FDA-Public Use
  Company Number: 2014011920

PATIENT
  Age: 55 Year
  Sex: Female
  Weight: 72 kg

DRUGS (1)
  1. FRAGMIN P FORTE [Suspect]
     Indication: DEEP VEIN THROMBOSIS
     Route: 058

REACTIONS (4)
  - Overdose [None]
  - Pulmonary embolism [None]
  - Respiratory failure [None]
  - Heparin-induced thrombocytopenia [None]
